FAERS Safety Report 25410229 (Version 3)
Quarter: 2025Q3

REPORT INFORMATION
  Report Type: Report from Study
  Country: US (occurrence: US)
  Receive Date: 20250608
  Receipt Date: 20250821
  Transmission Date: 20251020
  Serious: No
  Sender: SANDOZ
  Company Number: US-SANDOZ-SDZ2025US039543

PATIENT
  Age: 63 Year
  Sex: Male
  Weight: 79.365 kg

DRUGS (2)
  1. HYRIMOZ [Suspect]
     Active Substance: ADALIMUMAB-ADAZ
     Dosage: 40 MG, Q2W (HYRIMOZ  COR 40MG/0.4ML 2LISY PE BI USNDC:  83457010001STRENGTH: 40MGF)
     Route: 058
  2. HYRIMOZ [Suspect]
     Active Substance: ADALIMUMAB-ADAZ
     Indication: Rheumatoid arthritis
     Dosage: 40 MG, Q2W
     Route: 030
     Dates: start: 20250101

REACTIONS (4)
  - Erythema [Unknown]
  - Skin wound [Unknown]
  - Contusion [Unknown]
  - Device difficult to use [Unknown]

NARRATIVE: CASE EVENT DATE: 20250101
